FAERS Safety Report 7449028-8 (Version None)
Quarter: 2011Q2

REPORT INFORMATION
  Report Type: 
  Country: None (occurrence: None)
  Receive Date: 20110429
  Receipt Date: 20110422
  Transmission Date: 20111010
  Serious: Yes (Hospitalization, Other)
  Sender: FDA-Public Use
  Company Number: US-RB-025082-11

PATIENT
  Age: 35 Year
  Sex: Male

DRUGS (2)
  1. SUBOXONE [Suspect]
     Indication: PRODUCT USED FOR UNKNOWN INDICATION
     Dosage: DOSAGE INFORMATION UNKNOWN- SUBLINGUAL FILM
     Route: 065
  2. COCAINE [Suspect]
     Indication: PRODUCT USED FOR UNKNOWN INDICATION
     Dosage: UNKNOWN DOSING DETAILS
     Route: 065

REACTIONS (6)
  - SUICIDE ATTEMPT [None]
  - DEPRESSION [None]
  - INTENTIONAL OVERDOSE [None]
  - CRYING [None]
  - DRUG ABUSE [None]
  - MORBID THOUGHTS [None]
